FAERS Safety Report 5234282-3 (Version None)
Quarter: 2007Q1

REPORT INFORMATION
  Report Type: 
  Country: None (occurrence: None)
  Receive Date: 20070209
  Receipt Date: 20070202
  Transmission Date: 20070707
  Serious: Yes (Death, Hospitalization, Other)
  Sender: FDA-Public Use
  Company Number: PHEH2006US09851

PATIENT
  Age: 25 Year
  Sex: Male
  Weight: 50 kg

DRUGS (4)
  1. FOLIC ACID [Concomitant]
  2. EXJADE [Suspect]
     Indication: CHELATION THERAPY
     Dosage: 1000 MG, QD
     Route: 048
     Dates: start: 20060323, end: 20060619
  3. DESFERAL [Suspect]
     Indication: CHELATION THERAPY
     Dosage: 500 MG/KG, UNK
     Dates: start: 20060616
  4. HYDROXYUREA [Concomitant]

REACTIONS (50)
  - ANGINA UNSTABLE [None]
  - ARRHYTHMIA [None]
  - ATELECTASIS [None]
  - ATRIAL FLUTTER [None]
  - ATRIOVENTRICULAR BLOCK [None]
  - BACK PAIN [None]
  - BIOPSY HEART ABNORMAL [None]
  - BLOOD POTASSIUM INCREASED [None]
  - BREATH SOUNDS ABNORMAL [None]
  - CARDIAC FAILURE CONGESTIVE [None]
  - CARDIO-RESPIRATORY ARREST [None]
  - CARDIOMEGALY [None]
  - CARDIOMYOPATHY [None]
  - CATHETERISATION CARDIAC ABNORMAL [None]
  - CHEST PAIN [None]
  - CHEST X-RAY ABNORMAL [None]
  - DEAFNESS [None]
  - DIALYSIS [None]
  - DILATATION ATRIAL [None]
  - DILATATION VENTRICULAR [None]
  - DRUG ERUPTION [None]
  - DYSPNOEA [None]
  - EJECTION FRACTION DECREASED [None]
  - ELECTROCARDIOGRAM ST SEGMENT ABNORMAL [None]
  - FATIGUE [None]
  - FLUID OVERLOAD [None]
  - HAEMOCHROMATOSIS [None]
  - HAEMOSIDEROSIS [None]
  - HEADACHE [None]
  - HEPATIC FAILURE [None]
  - HEPATITIS C [None]
  - HYPOAESTHESIA [None]
  - HYPOTENSION [None]
  - LEUKOCYTOSIS [None]
  - MITRAL VALVE INCOMPETENCE [None]
  - MULTI-ORGAN FAILURE [None]
  - MUSCULOSKELETAL STIFFNESS [None]
  - MYOCARDITIS [None]
  - NUCLEAR MAGNETIC RESONANCE IMAGING ABNORMAL [None]
  - PALPITATIONS [None]
  - PHOTOPHOBIA [None]
  - PLEURAL EFFUSION [None]
  - PYREXIA [None]
  - RENAL FAILURE [None]
  - SERUM FERRITIN INCREASED [None]
  - SINUS TACHYCARDIA [None]
  - TRICUSPID VALVE INCOMPETENCE [None]
  - URINE OUTPUT DECREASED [None]
  - VENTRICULAR DYSFUNCTION [None]
  - VENTRICULAR HYPERTROPHY [None]
